FAERS Safety Report 5941431-8 (Version None)
Quarter: 2008Q4

REPORT INFORMATION
  Report Type: 
  Country: None (occurrence: None)
  Receive Date: 20081103
  Receipt Date: 20081103
  Transmission Date: 20090506
  Serious: Yes (Other)
  Sender: FDA-Public Use
  Company Number: None

PATIENT
  Age: 74 Year
  Sex: Female
  Weight: 66.2252 kg

DRUGS (1)
  1. BYSTOLIC [Suspect]
     Indication: HYPERTENSION
     Dosage: 10 MG 1 A DAY PO
     Route: 048
     Dates: start: 20080923, end: 20081020

REACTIONS (3)
  - ASTHENIA [None]
  - DYSPNOEA [None]
  - DYSPNOEA EXERTIONAL [None]
